FAERS Safety Report 17569964 (Version 2)
Quarter: 2020Q2

REPORT INFORMATION
  Report Type: Spontaneous
  Country: US (occurrence: US)
  Receive Date: 20200323
  Receipt Date: 20200511
  Transmission Date: 20200713
  Serious: Yes (Other)
  Sender: FDA-Public Use
  Company Number: US-PFIZER INC-2020117865

PATIENT
  Age: 48 Year
  Sex: Female

DRUGS (1)
  1. XELJANZ XR [Suspect]
     Active Substance: TOFACITINIB CITRATE
     Dosage: 11 MG, UNK

REACTIONS (7)
  - Decreased appetite [Unknown]
  - Depression [Unknown]
  - Rhinorrhoea [Unknown]
  - Gallbladder disorder [Unknown]
  - Fatigue [Unknown]
  - Gastric disorder [Not Recovered/Not Resolved]
  - Bone pain [Unknown]
